FAERS Safety Report 5318410-7 (Version None)
Quarter: 2007Q2

REPORT INFORMATION
  Report Type: 
  Country: None (occurrence: None)
  Receive Date: 20070501
  Receipt Date: 20070417
  Transmission Date: 20071010
  Serious: Yes (Other)
  Sender: FDA-Public Use
  Company Number: US-CVT-070090

PATIENT
  Age: 88 Year
  Sex: Female

DRUGS (9)
  1. RANEXA [Suspect]
     Indication: ANGINA PECTORIS
     Dosage: SEE IMAGE
     Route: 048
     Dates: start: 20070315, end: 20070412
  2. RANEXA [Suspect]
     Indication: ANGINA PECTORIS
     Dosage: SEE IMAGE
     Route: 048
     Dates: start: 20070413
  3. LIPITOR/01326101/ (ATORVASTATIN) [Concomitant]
  4. METOPROLOL/00376901/ (METOPROLOL) [Concomitant]
  5. NORVASC/00972401/ (AMLODIPINE) [Concomitant]
  6. TRIAMTERENE (TRIAMTERENE) [Concomitant]
  7. FOSAMAX [Concomitant]
  8. ASPIRIN [Concomitant]
  9. NITROGLYCERIN [Concomitant]

REACTIONS (1)
  - CONVULSION [None]
